FAERS Safety Report 4866816-2 (Version None)
Quarter: 2005Q4

REPORT INFORMATION
  Report Type: 
  Country: None (occurrence: None)
  Receive Date: 20051222
  Receipt Date: 20051213
  Transmission Date: 20060501
  Serious: Yes (Hospitalization)
  Sender: FDA-Public Use
  Company Number: 2005-05-1764

PATIENT
  Age: 57 Year
  Sex: Female
  Weight: 49 kg

DRUGS (6)
  1. PEG-INTRON (PEGINTERFERON ALFA-2B) INJECTABLE POWDER [Suspect]
     Indication: HEPATITIS C
     Dosage: SEE IMAGE
     Route: 058
     Dates: start: 20050324, end: 20050407
  2. PEG-INTRON (PEGINTERFERON ALFA-2B) INJECTABLE POWDER [Suspect]
     Indication: HEPATITIS C
     Dosage: SEE IMAGE
     Route: 058
     Dates: start: 20050324, end: 20050512
  3. PEG-INTRON (PEGINTERFERON ALFA-2B) INJECTABLE POWDER [Suspect]
     Indication: HEPATITIS C
     Dosage: SEE IMAGE
     Route: 058
     Dates: start: 20050414, end: 20050512
  4. REBETOL [Suspect]
     Indication: HEPATITIS C
     Dosage: SEE IMAGE
     Route: 048
     Dates: start: 20050329, end: 20050420
  5. REBETOL [Suspect]
     Indication: HEPATITIS C
     Dosage: SEE IMAGE
     Route: 048
     Dates: start: 20050329, end: 20050512
  6. REBETOL [Suspect]
     Indication: HEPATITIS C
     Dosage: SEE IMAGE
     Route: 048
     Dates: start: 20050421, end: 20050512

REACTIONS (5)
  - HAEMOGLOBIN DECREASED [None]
  - INJECTION SITE VESICLES [None]
  - PLATELET COUNT DECREASED [None]
  - RASH ERYTHEMATOUS [None]
  - SCAR [None]
